FAERS Safety Report 8786124 (Version 2)
Quarter: 2012Q4

REPORT INFORMATION
  Report Type: 
  Country: US (occurrence: US)
  Receive Date: 20120914
  Receipt Date: 20121112
  Transmission Date: 20130627
  Serious: Yes (Hospitalization)
  Sender: FDA-Public Use
  Company Number: US-TEVA-358186USA

PATIENT
  Sex: Female

DRUGS (4)
  1. PROAIR HFA [Suspect]
     Indication: ASTHMA
     Route: 055
  2. EFFEXOR-XR [Suspect]
     Indication: ANXIETY
     Route: 048
  3. EFFEXOR-XR [Suspect]
     Indication: DEPRESSION
  4. ZIAC [Concomitant]
     Indication: BLOOD PRESSURE
     Route: 048

REACTIONS (1)
  - Pneumonia [Recovered/Resolved]
